FAERS Safety Report 5405000-0 (Version None)
Quarter: 2007Q3

REPORT INFORMATION
  Report Type: 
  Country: None (occurrence: None)
  Receive Date: 20070803
  Receipt Date: 20070725
  Transmission Date: 20080115
  Serious: Yes (Other)
  Sender: FDA-Public Use
  Company Number: US-JNJFOC-20070706165

PATIENT
  Sex: Male

DRUGS (5)
  1. HALOPERIDOL DECANOATE [Suspect]
     Indication: SCHIZOPHRENIA
  2. HALDOL [Suspect]
     Indication: SCHIZOPHRENIA
  3. TRUVADA [Concomitant]
     Indication: HIV INFECTION
  4. REYATAZ [Concomitant]
     Indication: HIV INFECTION
  5. NORVIR [Concomitant]
     Indication: HIV INFECTION

REACTIONS (2)
  - BLOOD CREATININE INCREASED [None]
  - CREATININE RENAL CLEARANCE INCREASED [None]
